FAERS Safety Report 7182411-7 (Version None)
Quarter: 2010Q4

REPORT INFORMATION
  Report Type: 
  Country: None (occurrence: None)
  Receive Date: 20101221
  Receipt Date: 20100512
  Transmission Date: 20110411
  Serious: No
  Sender: FDA-Public Use
  Company Number: US-AMGEN-TCS412043

PATIENT

DRUGS (2)
  1. ENBREL [Suspect]
     Indication: JUVENILE ARTHRITIS
     Dosage: UNK UNK, UNK
  2. METHOTREXATE [Concomitant]

REACTIONS (1)
  - INJECTION SITE PAIN [None]
